FAERS Safety Report 17939950 (Version 1)
Quarter: 2020Q2

REPORT INFORMATION
  Report Type: Spontaneous
  Country: DE (occurrence: DE)
  Receive Date: 20200624
  Receipt Date: 20200624
  Transmission Date: 20200714
  Serious: Yes (Hospitalization)
  Sender: FDA-Public Use
  Company Number: DE-MYLANLABS-2020M1057467

PATIENT
  Age: 92 Year
  Sex: Female
  Weight: 76.5 kg

DRUGS (7)
  1. TORASEMIDE [Suspect]
     Active Substance: TORSEMIDE
     Indication: PRODUCT USED FOR UNKNOWN INDICATION
     Dosage: 50 MILLIGRAM, QD
  2. KALINOR                            /00031402/ [Concomitant]
     Active Substance: POTASSIUM CHLORIDE
     Dosage: 1-0-0-0, KAPSELN
  3. OLMESARTAN [Concomitant]
     Active Substance: OLMESARTAN
     Dosage: 20 MG, 1-0-0-0
  4. AMLODIPINE [Suspect]
     Active Substance: AMLODIPINE BESYLATE
     Indication: PRODUCT USED FOR UNKNOWN INDICATION
     Dosage: 5 MG, 1-0-1-0
  5. LATANOPROST / TIMOLOL [Concomitant]
     Dosage: 0-0-0-1, AUGENTROPFEN
  6. APIXABAN [Concomitant]
     Active Substance: APIXABAN
     Dosage: 2.5 MG, 1-0-1-0
  7. BISOPROLOL [Suspect]
     Active Substance: BISOPROLOL
     Indication: PRODUCT USED FOR UNKNOWN INDICATION
     Dosage: 3.75 MG, 1-0-1-0

REACTIONS (8)
  - General physical health deterioration [Unknown]
  - Dyspnoea [Unknown]
  - Product dose omission [Unknown]
  - Rhonchi [Unknown]
  - Cyanosis [Unknown]
  - Oedema peripheral [Unknown]
  - Oxygen saturation decreased [Unknown]
  - Hypoxia [Unknown]
